FAERS Safety Report 13418020 (Version 1)
Quarter: 2017Q2

REPORT INFORMATION
  Report Type: Report from Study
  Country: US (occurrence: US)
  Receive Date: 20170407
  Receipt Date: 20170407
  Transmission Date: 20170830
  Serious: Yes (Hospitalization, Congenital Anomaly, Other)
  Sender: FDA-Public Use
  Company Number: US-BRISTOL-MYERS SQUIBB COMPANY-BMS-2017-030371

PATIENT
  Age: 0 Day
  Sex: Female
  Weight: 2.66 kg

DRUGS (5)
  1. PROAIR HFA [Suspect]
     Active Substance: ALBUTEROL SULFATE
     Indication: PRODUCT USED FOR UNKNOWN INDICATION
     Dosage: 1 DF, PRN
     Route: 064
     Dates: start: 20090517, end: 20100219
  2. SINGULAIR [Suspect]
     Active Substance: MONTELUKAST SODIUM
     Indication: PRODUCT USED FOR UNKNOWN INDICATION
     Dosage: 10 MG, UNK
     Route: 064
     Dates: start: 20090517, end: 20100219
  3. ARIPIPRAZOLE. [Suspect]
     Active Substance: ARIPIPRAZOLE
     Indication: PRODUCT USED FOR UNKNOWN INDICATION
     Dosage: 2 MG, UNK
     Route: 064
     Dates: start: 20090517, end: 20100219
  4. ZYRTEC [Suspect]
     Active Substance: CETIRIZINE HYDROCHLORIDE
     Indication: HYPERSENSITIVITY
     Dosage: 10 MG, UNK
     Route: 064
     Dates: start: 20090517, end: 20100219
  5. ADVAIR HFA [Suspect]
     Active Substance: FLUTICASONE PROPIONATE\SALMETEROL XINAFOATE
     Indication: PRODUCT USED FOR UNKNOWN INDICATION
     Dosage: 1 DF, UNK
     Route: 064
     Dates: start: 20090517, end: 20100219

REACTIONS (6)
  - Hyperbilirubinaemia neonatal [Unknown]
  - Feeding disorder [Recovered/Resolved]
  - Foetal exposure during pregnancy [Unknown]
  - Dyspnoea [Recovered/Resolved]
  - Laryngomalacia [Unknown]
  - Umbilical cord around neck [Recovered/Resolved]

NARRATIVE: CASE EVENT DATE: 20100219
